FAERS Safety Report 6023126-8 (Version None)
Quarter: 2008Q4

REPORT INFORMATION
  Report Type: 
  Country: None (occurrence: None)
  Receive Date: 20081230
  Receipt Date: 20081222
  Transmission Date: 20090506
  Serious: Yes (Other)
  Sender: FDA-Public Use
  Company Number: US-JNJCH-2008058251

PATIENT

DRUGS (1)
  1. DESITIN DIAPER RASH [Suspect]
     Indication: DRUG USE FOR UNKNOWN INDICATION
     Dosage: TEXT:UNSPECIFIED
     Route: 061

REACTIONS (5)
  - APPLICATION SITE DISCOLOURATION [None]
  - APPLICATION SITE INFECTION [None]
  - APPLICATION SITE RASH [None]
  - APPLICATION SITE SCAB [None]
  - EXPIRED DRUG ADMINISTERED [None]
